FAERS Safety Report 15580709 (Version 1)
Quarter: 2018Q4

REPORT INFORMATION
  Report Type: Spontaneous
  Country: US (occurrence: US)
  Receive Date: 20181103
  Receipt Date: 20181103
  Transmission Date: 20190205
  Serious: Yes (Life-Threatening, Disabling)
  Sender: FDA-Public Use
  Company Number: None

PATIENT
  Age: 46 Year
  Sex: Female
  Weight: 62.1 kg

DRUGS (1)
  1. KENALOG-40 [Suspect]
     Active Substance: TRIAMCINOLONE ACETONIDE
     Dates: start: 20160821, end: 20160821

REACTIONS (7)
  - Wrong technique in product usage process [None]
  - Meningitis fungal [None]
  - Fungal infection [None]
  - Solar dermatitis [None]
  - Injection site indentation [None]
  - Skin disorder [None]
  - Infection parasitic [None]

NARRATIVE: CASE EVENT DATE: 20160821
